FAERS Safety Report 9151983 (Version 2)
Quarter: 2013Q2

REPORT INFORMATION
  Report Type: Spontaneous
  Country: US (occurrence: US)
  Receive Date: 20130308
  Receipt Date: 20130409
  Transmission Date: 20140414
  Serious: Yes (Other)
  Sender: FDA-Public Use
  Company Number: US-AMGEN-USASP2013015459

PATIENT
  Age: 57 Year
  Sex: Female
  Weight: 54.42 kg

DRUGS (8)
  1. ENBREL [Suspect]
     Indication: PSORIASIS
     Dosage: 50 MG, 2 TIMES/WK
     Route: 058
     Dates: start: 20070612
  2. CLOBETASOL [Concomitant]
     Dosage: UNK UNK, BID 1 APPLICATION TOPICALLY TWO TIMES PER DAY
     Route: 061
     Dates: start: 20130201
  3. PROMETHAZINE [Concomitant]
     Dosage: 25 MG, 1 TAB BY MOUTH EVERY 6 HOURS AS NEEDED
     Route: 048
     Dates: start: 20130105
  4. TACROLIMUS [Concomitant]
     Dosage: 1 APPLICATION TOPICALLY TWO TIMES PER DAY
     Dates: start: 20121221
  5. PREVACID [Concomitant]
     Dosage: 30 MG, QD
     Route: 048
     Dates: start: 20121127
  6. ANUSOL HC [Concomitant]
     Dosage: 25 MG, TWICE DAILY AS NEEDED
     Route: 054
     Dates: start: 20121127
  7. VECTICAL [Concomitant]
     Dosage: 3 MUG, 1 APPLICATION TOPICALLY ONCE PER DAY
     Dates: start: 20121005
  8. ALEVE [Concomitant]
     Dosage: 220 MG, UNK
     Route: 048

REACTIONS (5)
  - Large intestine polyp [Recovered/Resolved]
  - Arthralgia [Not Recovered/Not Resolved]
  - Pain in extremity [Not Recovered/Not Resolved]
  - Headache [Not Recovered/Not Resolved]
  - Chest pain [Not Recovered/Not Resolved]
